FAERS Safety Report 20635071 (Version 1)
Quarter: 2022Q1

REPORT INFORMATION
  Report Type: Spontaneous
  Country: PT (occurrence: PT)
  Receive Date: 20220325
  Receipt Date: 20220325
  Transmission Date: 20220423
  Serious: Yes (Other)
  Sender: FDA-Public Use
  Company Number: PT-SEATTLE GENETICS-2022SGN02192

PATIENT
  Sex: Female

DRUGS (3)
  1. CAPECITABINE [Suspect]
     Active Substance: CAPECITABINE
     Indication: Breast cancer metastatic
     Dosage: UNK
     Route: 065
     Dates: start: 20210908
  2. TRASTUZUMAB [Suspect]
     Active Substance: TRASTUZUMAB
     Indication: HER2 positive breast cancer
     Dosage: UNK
     Route: 065
     Dates: start: 20210908
  3. TUKYSA [Suspect]
     Active Substance: TUCATINIB
     Indication: HER2 positive gastric cancer
     Dosage: 600 MILLIGRAM, ONCE A DAY
     Route: 065
     Dates: start: 20210908

REACTIONS (8)
  - Renal failure [Recovering/Resolving]
  - Hyperbilirubinaemia [Unknown]
  - Dehydration [Unknown]
  - Palmar-plantar erythrodysaesthesia syndrome [Unknown]
  - Anaemia [Unknown]
  - Diarrhoea [Unknown]
  - Onycholysis [Unknown]
  - Transaminases increased [Unknown]
